FAERS Safety Report 14206693 (Version 1)
Quarter: 2017Q4

REPORT INFORMATION
  Report Type: Spontaneous
  Country: FR (occurrence: FR)
  Receive Date: 20171121
  Receipt Date: 20171121
  Transmission Date: 20180321
  Serious: Yes (Hospitalization)
  Sender: FDA-Public Use
  Company Number: FR-ROCHE-2025455

PATIENT
  Age: 63 Year
  Sex: Male

DRUGS (6)
  1. SOLUPRED (FRANCE) [Suspect]
     Active Substance: PREDNISOLONE
     Indication: GLIOBLASTOMA
     Route: 048
  2. SEROPLEX [Suspect]
     Active Substance: ESCITALOPRAM OXALATE
     Indication: PRODUCT USED FOR UNKNOWN INDICATION
     Route: 065
  3. AVASTIN [Suspect]
     Active Substance: BEVACIZUMAB
     Indication: GLIOBLASTOMA
     Route: 042
     Dates: start: 20170804
  4. BELUSTINE [Suspect]
     Active Substance: LOMUSTINE
     Indication: GLIOBLASTOMA
     Route: 048
     Dates: start: 20161206, end: 20170804
  5. XANAX [Concomitant]
     Active Substance: ALPRAZOLAM
  6. SILODYX [Concomitant]
     Active Substance: SILODOSIN

REACTIONS (3)
  - Hepatitis cholestatic [Not Recovered/Not Resolved]
  - Intentional product use issue [Unknown]
  - Off label use [Unknown]

NARRATIVE: CASE EVENT DATE: 20170817
